FAERS Safety Report 18274667 (Version 1)
Quarter: 2020Q3

REPORT INFORMATION
  Report Type: Spontaneous
  Country: US (occurrence: US)
  Receive Date: 20200916
  Receipt Date: 20200916
  Transmission Date: 20201103
  Serious: No
  Sender: FDA-Public Use
  Company Number: US-ABBVIE-20K-163-3512814-00

PATIENT
  Age: 39 Year
  Sex: Female

DRUGS (2)
  1. DUPILUMAB [Suspect]
     Active Substance: DUPILUMAB
     Indication: DERMATITIS ATOPIC
     Route: 065
     Dates: end: 2020
  2. RINVOQ [Suspect]
     Active Substance: UPADACITINIB
     Indication: DERMATITIS ATOPIC
     Route: 048
     Dates: start: 2020

REACTIONS (2)
  - Off label use [Not Recovered/Not Resolved]
  - Eczema herpeticum [Recovered/Resolved]

NARRATIVE: CASE EVENT DATE: 2020
